FAERS Safety Report 5896033-9 (Version None)
Quarter: 2008Q3

REPORT INFORMATION
  Report Type: 
  Country: None (occurrence: None)
  Receive Date: 20080924
  Receipt Date: 20080912
  Transmission Date: 20090109
  Serious: Yes (Other)
  Sender: FDA-Public Use
  Company Number: JP-SANOFI-SYNTHELABO-A01200811578

PATIENT
  Sex: Female

DRUGS (1)
  1. MYSLEE [Suspect]
     Indication: INSOMNIA
     Route: 048

REACTIONS (1)
  - DELIRIUM [None]
